FAERS Safety Report 11860617 (Version 1)
Quarter: 2015Q4

REPORT INFORMATION
  Report Type: Spontaneous
  Country: US (occurrence: US)
  Receive Date: 20151222
  Receipt Date: 20151222
  Transmission Date: 20160305
  Serious: No
  Sender: FDA-Public Use
  Company Number: US-G+W LABORATORIES-1045790

PATIENT
  Sex: Female

DRUGS (3)
  1. METRONIDAZOLE. [Suspect]
     Active Substance: METRONIDAZOLE
     Indication: ROSACEA
     Route: 061
     Dates: start: 201411
  2. FOLCAPS OMEGA-3 [Concomitant]
     Active Substance: .ALPHA.-TOCOPHEROL ACETATE\CALCIUM\CALCIUM ASCORBATE\CALCIUM THREONATE\CHOLECALCIFEROL\DOCONEXENT\FERROUS ASPARTO GLYCINATE\FOLIC ACID\ICOSAPENT\IRON\LINOLENIC ACID\PYRIDOXINE HYDROCHLORIDE
  3. VITAMIN D3DIETARY SUPPLEMEN DIETARY SUPPLEMENT [Concomitant]
     Active Substance: ALPHA-TOCOPHEROL\CHOLECALCIFEROL

REACTIONS (3)
  - Lacrimation increased [Not Recovered/Not Resolved]
  - Paraesthesia [Not Recovered/Not Resolved]
  - Lacrimation increased [Not Recovered/Not Resolved]

NARRATIVE: CASE EVENT DATE: 20141126
